FAERS Safety Report 5501970-0 (Version None)
Quarter: 2007Q4

REPORT INFORMATION
  Report Type: 
  Country: None (occurrence: None)
  Receive Date: 20071030
  Receipt Date: 20071016
  Transmission Date: 20080405
  Serious: Yes (Hospitalization)
  Sender: FDA-Public Use
  Company Number: US-GENENTECH-249622

PATIENT
  Sex: Female
  Weight: 79.55 kg

DRUGS (3)
  1. EFALIZUMAB [Suspect]
     Indication: PSORIASIS
     Dosage: 1 MG, 1/WEEK
     Route: 058
     Dates: start: 20041221
  2. PHOTOTHERAPY [Concomitant]
     Indication: PSORIASIS
     Dosage: UNK, 3/WEEK
     Dates: start: 20051012
  3. STEROIDS NOS [Concomitant]
     Indication: PSORIASIS
     Dosage: UNK, QD
     Route: 061
     Dates: start: 20051220

REACTIONS (1)
  - PNEUMONIA FUNGAL [None]
